FAERS Safety Report 7878705-X (Version None)
Quarter: 2011Q4

REPORT INFORMATION
  Report Type: 
  Country: None (occurrence: None)
  Receive Date: 20111101
  Receipt Date: 20111021
  Transmission Date: 20120403
  Serious: Yes (Hospitalization)
  Sender: FDA-Public Use
  Company Number: US-BAYER-2011-026048

PATIENT
  Age: 24 Year
  Sex: Female
  Weight: 47 kg

DRUGS (4)
  1. ASMENEX [Concomitant]
     Dosage: UNK
     Dates: end: 20070801
  2. YASMIN [Suspect]
     Indication: ORAL CONTRACEPTION
  3. DROSPIRENONE AND ETHINYL ESTRADIOL [Suspect]
     Indication: ORAL CONTRACEPTION
     Dosage: UNK
     Route: 048
     Dates: start: 20080101, end: 20090101
  4. YASMIN [Suspect]
     Indication: ACNE
     Dosage: UNK
     Route: 048
     Dates: start: 20060701, end: 20080101

REACTIONS (6)
  - NAUSEA [None]
  - PAIN [None]
  - INJURY [None]
  - GALLBLADDER DISORDER [None]
  - MALAISE [None]
  - FOOD INTOLERANCE [None]
